FAERS Safety Report 4275830-X (Version None)
Quarter: 2004Q1

REPORT INFORMATION
  Report Type: 
  Country: None (occurrence: None)
  Receive Date: 20040121
  Receipt Date: 20021218
  Transmission Date: 20041129
  Serious: No
  Sender: FDA-Public Use
  Company Number: US-GLAXOSMITHKLINE-A0389734A

PATIENT
  Age: 58 Year
  Sex: Female

DRUGS (9)
  1. VALTREX [Suspect]
     Indication: ANTIVIRAL PROPHYLAXIS
     Dosage: 500MG PER DAY
     Route: 048
     Dates: start: 20010201
  2. LOPRESSOR [Concomitant]
     Route: 065
  3. METROGEL [Concomitant]
     Route: 065
  4. SALAGEN [Concomitant]
     Route: 065
  5. PREMPRO [Concomitant]
     Route: 065
  6. SYNTHROID [Concomitant]
     Route: 065
  7. GLUCOSAMINE [Concomitant]
     Route: 065
  8. CALCIUM [Concomitant]
     Route: 065
  9. MULTIVITAMIN [Concomitant]
     Route: 065

REACTIONS (1)
  - NIGHTMARE [None]
